FAERS Safety Report 9147781 (Version 1)
Quarter: 2013Q1

REPORT INFORMATION
  Report Type: Spontaneous
  Country: FR (occurrence: FR)
  Receive Date: 20130307
  Receipt Date: 20130307
  Transmission Date: 20140127
  Serious: Yes (Life-Threatening)
  Sender: FDA-Public Use
  Company Number: FR-ELI_LILLY_AND_COMPANY-FR201302009789

PATIENT
  Age: 32 Year
  Sex: Male

DRUGS (6)
  1. EFIENT [Suspect]
     Indication: MYOCARDIAL INFARCTION
     Dosage: 10 MG, QD
     Route: 048
     Dates: start: 20130112, end: 20130124
  2. KARDEGIC [Concomitant]
     Dosage: 75 MG, UNKNOWN
     Dates: start: 20130112
  3. COVERSYL [Concomitant]
     Dosage: 10 MG, UNK
     Dates: start: 20130112
  4. CARDENSIEL [Concomitant]
     Dosage: 7.5 MG, UNKNOWN
     Dates: start: 20130112
  5. TAHOR [Concomitant]
     Dosage: 40 MG, UNKNOWN
     Dates: start: 20130112
  6. NICOPATCH [Concomitant]
     Dosage: 21 MG, QD
     Dates: start: 20130112

REACTIONS (3)
  - Haematemesis [Recovered/Resolved]
  - Shock haemorrhagic [Recovered/Resolved]
  - Gastric ulcer perforation [Recovered/Resolved]
